FAERS Safety Report 9797592 (Version 1)
Quarter: 2014Q1

REPORT INFORMATION
  Report Type: Spontaneous
  Country: FR (occurrence: FR)
  Receive Date: 20140106
  Receipt Date: 20140106
  Transmission Date: 20141002
  Serious: Yes (Hospitalization, Other)
  Sender: FDA-Public Use
  Company Number: FR-009507513-1312FRA012349

PATIENT
  Age: 77 Year
  Sex: Female

DRUGS (12)
  1. CELESTENE [Suspect]
     Dosage: 1 DF, QD
     Route: 048
     Dates: start: 20131114, end: 20131123
  2. ROCEPHIN [Suspect]
     Dosage: UNK
     Route: 030
     Dates: start: 20131114, end: 20131123
  3. OROKEN [Suspect]
     Dosage: UNK
     Route: 048
     Dates: start: 20131104, end: 20131114
  4. SURBRONC [Suspect]
     Dosage: UNK
     Route: 048
     Dates: start: 20131114, end: 20131123
  5. CHONDROSULF [Suspect]
     Dosage: UNK
     Route: 048
     Dates: start: 20131114, end: 20131123
  6. ACETAMINOPHEN [Suspect]
     Dosage: UNK
     Route: 048
     Dates: start: 20131114, end: 20131123
  7. BRONCHOKOD [Suspect]
     Dosage: UNK
     Route: 048
     Dates: start: 20131104, end: 20131114
  8. VIBRAMYCIN (DOXYCYCLINE) [Concomitant]
     Dosage: UNK
     Route: 048
     Dates: start: 20131123, end: 20131125
  9. TRIFLUCAN [Concomitant]
     Dosage: UNK
     Route: 048
     Dates: start: 20131123, end: 20131125
  10. TANAKAN [Concomitant]
     Route: 065
  11. PIASCLEDINE [Concomitant]
     Route: 065
  12. ULTRA LEVURE [Concomitant]
     Dosage: UNK
     Route: 065
     Dates: start: 20131123

REACTIONS (1)
  - Stevens-Johnson syndrome [Recovered/Resolved]
